FAERS Safety Report 7289552-4 (Version None)
Quarter: 2011Q1

REPORT INFORMATION
  Report Type: 
  Country: None (occurrence: None)
  Receive Date: 20110214
  Receipt Date: 20110208
  Transmission Date: 20110831
  Serious: Yes (Hospitalization)
  Sender: FDA-Public Use
  Company Number: US-ASTRAZENECA-2007UW12049

PATIENT
  Age: 16521 Day
  Sex: Female
  Weight: 147.4 kg

DRUGS (33)
  1. SEROQUEL [Suspect]
     Route: 048
     Dates: start: 20000901, end: 20101201
  2. CELEXA [Concomitant]
  3. ULTRAM [Concomitant]
  4. GEODON [Concomitant]
  5. AVANDIA [Concomitant]
  6. SEROQUEL [Suspect]
     Dosage: 100 MG - 225 MG
     Route: 048
     Dates: start: 20000912, end: 20060101
  7. SEROQUEL [Suspect]
     Route: 048
     Dates: start: 20000901, end: 20101201
  8. DEXAMETHASONE [Concomitant]
  9. BYETTA [Concomitant]
  10. HALDOL [Concomitant]
     Dates: start: 20050101
  11. SEROQUEL [Suspect]
     Indication: SCHIZOAFFECTIVE DISORDER
     Dosage: 25-100MG
     Route: 048
     Dates: start: 20000816
  12. SEROQUEL [Suspect]
     Indication: MENTAL DISORDER
     Dosage: 25-100MG
     Route: 048
     Dates: start: 20000816
  13. SEROQUEL [Suspect]
     Dosage: 100 MG - 225 MG
     Route: 048
     Dates: start: 20000912, end: 20060101
  14. SEROQUEL [Suspect]
     Indication: SCHIZOPHRENIA
     Dosage: 25-100MG
     Route: 048
     Dates: start: 20000816
  15. SEROQUEL [Suspect]
     Route: 048
     Dates: start: 20000901, end: 20101201
  16. SEROQUEL [Suspect]
     Route: 048
     Dates: start: 20000901, end: 20101201
  17. RISPERDAL [Concomitant]
     Dates: start: 20020101, end: 20020101
  18. LORAZEPAM [Concomitant]
  19. SYNTHROID [Concomitant]
  20. GLIMEPIRIDE [Concomitant]
  21. ZANTAC [Concomitant]
     Indication: GASTROOESOPHAGEAL REFLUX DISEASE
     Dates: start: 19940524
  22. SEROQUEL [Suspect]
     Indication: DEPRESSION
     Dosage: 25-100MG
     Route: 048
     Dates: start: 20000816
  23. SEROQUEL [Suspect]
     Dosage: 100 MG - 225 MG
     Route: 048
     Dates: start: 20000912, end: 20060101
  24. MELOXICAM [Concomitant]
  25. PROPRANOLOL [Concomitant]
  26. SKELAXIN [Concomitant]
  27. SEROQUEL [Suspect]
     Dosage: 100 MG - 225 MG
     Route: 048
     Dates: start: 20000912, end: 20060101
  28. PROSOM [Concomitant]
  29. HYDROCODONE [Concomitant]
  30. WELLBUTRIN [Concomitant]
  31. FUROSEMIDE [Concomitant]
  32. METFORMIN HYDROCHLORIDE [Concomitant]
  33. LIPITOR [Concomitant]

REACTIONS (41)
  - EAR PAIN [None]
  - PARAESTHESIA [None]
  - RADICULOPATHY [None]
  - OVERDOSE [None]
  - RENAL FAILURE ACUTE [None]
  - CYSTITIS HAEMORRHAGIC [None]
  - PAIN [None]
  - CERUMEN IMPACTION [None]
  - MENTAL DISORDER [None]
  - OEDEMA PERIPHERAL [None]
  - ABDOMINAL PAIN [None]
  - NAUSEA [None]
  - VAGINAL INFECTION [None]
  - HYPERLIPIDAEMIA [None]
  - NON-CARDIAC CHEST PAIN [None]
  - MICTURITION URGENCY [None]
  - RENAL FAILURE [None]
  - TYPE 2 DIABETES MELLITUS [None]
  - BREAST CYST [None]
  - DYSPNOEA [None]
  - MUSCULOSKELETAL DISCOMFORT [None]
  - PLANTAR FASCIITIS [None]
  - FLANK PAIN [None]
  - BRIEF PSYCHOTIC DISORDER WITH MARKED STRESSORS [None]
  - SCHIZOAFFECTIVE DISORDER [None]
  - ABDOMINAL PAIN UPPER [None]
  - CARPAL TUNNEL SYNDROME [None]
  - BREAST MASS [None]
  - BACK PAIN [None]
  - HAEMATURIA [None]
  - OSTEOARTHRITIS [None]
  - BLOOD CHOLESTEROL INCREASED [None]
  - GASTRITIS [None]
  - DIZZINESS [None]
  - HYPERTENSION [None]
  - FALL [None]
  - MUSCULOSKELETAL PAIN [None]
  - HYPOTHYROIDISM [None]
  - VOMITING [None]
  - PAIN IN EXTREMITY [None]
  - FACIAL PAIN [None]
